FAERS Safety Report 5500994-7 (Version None)
Quarter: 2007Q4

REPORT INFORMATION
  Report Type: 
  Country: None (occurrence: None)
  Receive Date: 20071029
  Receipt Date: 20071016
  Transmission Date: 20080405
  Serious: Yes (Other)
  Sender: FDA-Public Use
  Company Number: PHHO2007AR17211

PATIENT
  Age: 51 Year
  Sex: Female

DRUGS (1)
  1. RECLAST [Suspect]
     Indication: OSTEOPOROSIS
     Dates: start: 20071010

REACTIONS (7)
  - ASTHENIA [None]
  - BONE PAIN [None]
  - COLITIS [None]
  - INCREASED UPPER AIRWAY SECRETION [None]
  - PYREXIA [None]
  - SOMNOLENCE [None]
  - VOMITING [None]
